FAERS Safety Report 4451299-7 (Version None)
Quarter: 2004Q3

REPORT INFORMATION
  Report Type: 
  Country: None (occurrence: None)
  Receive Date: 20040916
  Receipt Date: 20040621
  Transmission Date: 20050211
  Serious: Yes (Hospitalization, Other)
  Sender: FDA-Public Use
  Company Number: FR-AMGEN-UK080796

PATIENT
  Sex: Female
  Weight: 72 kg

DRUGS (1)
  1. NEUPOGEN [Suspect]
     Indication: PERIPHERAL BLOOD STEM CELL APHERESIS
     Route: 065
     Dates: start: 20040117, end: 20040121

REACTIONS (8)
  - BALANCE DISORDER [None]
  - DIPLOPIA [None]
  - HEADACHE [None]
  - LEUKOCYTOSIS [None]
  - NYSTAGMUS [None]
  - PELVIC PAIN [None]
  - TINNITUS [None]
  - VERTIGO [None]
